FAERS Safety Report 26042997 (Version 1)
Quarter: 2025Q4

REPORT INFORMATION
  Report Type: Spontaneous
  Country: US (occurrence: US)
  Receive Date: 20251113
  Receipt Date: 20251113
  Transmission Date: 20260117
  Serious: No
  Sender: ANI
  Company Number: US-ANIPHARMA-2025-US-047033

PATIENT
  Age: 68 Year
  Sex: Female

DRUGS (2)
  1. CORTICOTROPIN [Suspect]
     Active Substance: CORTICOTROPIN
     Indication: Colitis ulcerative
     Dosage: 1 ML TWICE PER WEEK
     Route: 058
     Dates: start: 202502
  2. ADALIMUMAB-AACF PEN INJ [Concomitant]

REACTIONS (1)
  - Seasonal allergy [Unknown]
